FAERS Safety Report 4327530-5 (Version None)
Quarter: 2004Q1

REPORT INFORMATION
  Report Type: 
  Country: None (occurrence: None)
  Receive Date: 20040325
  Receipt Date: 20040317
  Transmission Date: 20041129
  Serious: Yes (Hospitalization, Other)
  Sender: FDA-Public Use
  Company Number: FRWYE593019FEB04

PATIENT
  Age: 73 Year
  Sex: Female

DRUGS (11)
  1. EFFEXOR XR [Suspect]
     Indication: DYSTHYMIC DISORDER
     Dosage: 37.5 MG 2X PER 1 DAY, ORAL
     Route: 048
     Dates: end: 20031201
  2. APROVEL (IRBESARTAN, 0) [Suspect]
     Indication: ESSENTIAL HYPERTENSION
     Dosage: 300MG 1X PER 1 DAY, ORAL
     Route: 048
     Dates: end: 20031201
  3. TRAMADOL HCL [Suspect]
     Dosage: 2 TABLET 1X PER 1 DAY, ORAL
     Route: 048
     Dates: end: 20031201
  4. GLUCOR (ACARBOSE, 0) [Suspect]
     Indication: DIABETES MELLITUS
     Dosage: 100 MG 3X PER 1 DAY, ORAL
     Route: 048
     Dates: end: 20031203
  5. LASILIX (FUROSEMIDE, 0) [Suspect]
     Indication: ESSENTIAL HYPERTENSION
     Dosage: 1 DOSE 1X PER 1 DAY, ORAL
     Route: 048
     Dates: end: 20031203
  6. NEURONTIN [Suspect]
     Dosage: 2 DOSE 1X PER 1 DAY, ORAL
     Route: 048
     Dates: end: 20031205
  7. AMLODIPINE BESYLATE [Concomitant]
  8. OGAST (LANSOPRAZOLE) [Concomitant]
  9. DIFRAREL (BETACAROTENE/MYRTILLUS) [Concomitant]
  10. ACETAMINOPHEN [Concomitant]
  11. VASTAREL (TRIMETAZIDINE HYDROCHLORIDE) [Concomitant]

REACTIONS (13)
  - BRADYARRHYTHMIA [None]
  - CEREBRAL ATROPHY [None]
  - ECZEMA [None]
  - ELECTROENCEPHALOGRAM ABNORMAL [None]
  - FALL [None]
  - HEADACHE [None]
  - METABOLIC DISORDER [None]
  - NERVOUS SYSTEM DISORDER [None]
  - PRURITUS [None]
  - SELF-MEDICATION [None]
  - TOXIC SKIN ERUPTION [None]
  - URTICARIA [None]
  - VERTIGO [None]
